FAERS Safety Report 18797395 (Version 1)
Quarter: 2021Q1

REPORT INFORMATION
  Report Type: Spontaneous
  Country: CN (occurrence: CN)
  Receive Date: 20210128
  Receipt Date: 20210128
  Transmission Date: 20210419
  Serious: Yes (Other)
  Sender: FDA-Public Use
  Company Number: CN-009507513-2101CHN011074

PATIENT
  Age: 57 Year
  Sex: Female
  Weight: 52 kg

DRUGS (1)
  1. CANCIDAS [Suspect]
     Active Substance: CASPOFUNGIN ACETATE
     Indication: LYMPHOMA
     Dosage: 100 MILLIGRAM, ONE TIME IN ONE DAY, FORMULATION REPORTED AS POWDER
     Route: 041
     Dates: start: 20201217, end: 20201217

REACTIONS (9)
  - Cardiac failure acute [Recovered/Resolved]
  - Respiratory failure [Recovered/Resolved]
  - Infusion related reaction [Recovered/Resolved]
  - Malignant neoplasm progression [Unknown]
  - Pyrexia [Recovered/Resolved]
  - Chills [Recovered/Resolved]
  - Blood glucose abnormal [Recovered/Resolved]
  - Product use in unapproved indication [Unknown]
  - Interstitial lung disease [Recovered/Resolved]

NARRATIVE: CASE EVENT DATE: 2020
